FAERS Safety Report 25664047 (Version 2)
Quarter: 2025Q4

REPORT INFORMATION
  Report Type: Spontaneous
  Country: US (occurrence: US)
  Receive Date: 20250811
  Receipt Date: 20251119
  Transmission Date: 20260117
  Serious: Yes (Hospitalization, Other)
  Sender: JOHNSON AND JOHNSON
  Company Number: US-JNJFOC-20250802359

PATIENT
  Age: 15 Year
  Sex: Female

DRUGS (3)
  1. INFLIXIMAB [Suspect]
     Active Substance: INFLIXIMAB
     Indication: Psoriasis
     Route: 041
  2. AZATHIOPRINE [Suspect]
     Active Substance: AZATHIOPRINE
     Indication: Psoriasis
  3. ADALIMUMAB [Suspect]
     Active Substance: ADALIMUMAB
     Indication: Psoriasis

REACTIONS (4)
  - Staphylococcal bacteraemia [Unknown]
  - Arthritis bacterial [Unknown]
  - Myositis [Unknown]
  - Off label use [Unknown]
